FAERS Safety Report 6903411-5 (Version None)
Quarter: 2010Q3

REPORT INFORMATION
  Report Type: 
  Country: None (occurrence: None)
  Receive Date: 20100803
  Receipt Date: 20080929
  Transmission Date: 20110219
  Serious: No
  Sender: FDA-Public Use
  Company Number: US-PFIZER INC-2008073739

PATIENT
  Sex: Female
  Weight: 105.4 kg

DRUGS (9)
  1. LYRICA [Suspect]
     Indication: FIBROMYALGIA
     Route: 048
     Dates: start: 20080702
  2. LYRICA [Suspect]
     Indication: NEURALGIA
  3. SYNTHROID [Concomitant]
  4. FLEXERIL [Concomitant]
  5. OXYCONTIN [Concomitant]
  6. NEXIUM [Concomitant]
  7. ALLEGRA [Concomitant]
  8. PSEUDOEPHEDRINE [Concomitant]
  9. RESTORIL [Concomitant]

REACTIONS (3)
  - ALOPECIA [None]
  - DRUG INEFFECTIVE [None]
  - SOMNOLENCE [None]
